FAERS Safety Report 5052928-X (Version None)
Quarter: 2006Q3

REPORT INFORMATION
  Report Type: 
  Country: None (occurrence: None)
  Receive Date: 20060712
  Receipt Date: 20060701
  Transmission Date: 20061208
  Serious: Yes (Hospitalization)
  Sender: FDA-Public Use
  Company Number: 2006082549

PATIENT
  Age: 54 Year
  Sex: Female

DRUGS (1)
  1. BENADRYL [Suspect]
     Dosage: ORAL
     Route: 048
     Dates: start: 20060701

REACTIONS (5)
  - ABNORMAL BEHAVIOUR [None]
  - DEHYDRATION [None]
  - DELIRIUM [None]
  - DIABETES MELLITUS [None]
  - DIARRHOEA [None]
